FAERS Safety Report 7935516-4 (Version None)
Quarter: 2011Q4

REPORT INFORMATION
  Report Type: 
  Country: None (occurrence: None)
  Receive Date: 20111123
  Receipt Date: 20111109
  Transmission Date: 20120403
  Serious: Yes (Hospitalization)
  Sender: FDA-Public Use
  Company Number: US-BIOGENIDEC-2011BI043555

PATIENT
  Age: 51 Year
  Sex: Male
  Weight: 112 kg

DRUGS (5)
  1. VIAGRA [Concomitant]
     Route: 048
  2. PREDNISONE TAB [Concomitant]
     Route: 048
  3. LORAZEPAM [Concomitant]
     Route: 048
  4. ZOLPIDEM [Concomitant]
     Route: 048
  5. TYSABRI [Suspect]
     Indication: CROHN'S DISEASE
     Route: 042
     Dates: start: 20110523

REACTIONS (1)
  - ILEOSTOMY CLOSURE [None]
